FAERS Safety Report 20348202 (Version 1)
Quarter: 2022Q1

REPORT INFORMATION
  Report Type: Spontaneous
  Country: US (occurrence: US)
  Receive Date: 20220119
  Receipt Date: 20220119
  Transmission Date: 20220424
  Serious: Yes (Hospitalization)
  Sender: FDA-Public Use
  Company Number: US-AMGEN-USASP2022008284

PATIENT
  Age: 71 Year
  Sex: Female

DRUGS (11)
  1. OTEZLA [Suspect]
     Active Substance: APREMILAST
     Indication: Psoriasis
     Dosage: UNK
     Route: 048
     Dates: start: 20211214
  2. CLONAZEPAM [Concomitant]
     Active Substance: CLONAZEPAM
  3. DONEPEZIL [Concomitant]
     Active Substance: DONEPEZIL
  4. BUPROPION [Concomitant]
     Active Substance: BUPROPION
  5. METHOCARBAMOL [Concomitant]
     Active Substance: METHOCARBAMOL
  6. OXYCODONE [Concomitant]
     Active Substance: OXYCODONE
  7. ESCITALOPRAM [Concomitant]
     Active Substance: ESCITALOPRAM OXALATE
  8. PANTOPRAZOLE [Concomitant]
     Active Substance: PANTOPRAZOLE
  9. MIRTAZAPINE [Concomitant]
     Active Substance: MIRTAZAPINE
  10. BACTRIM [Concomitant]
     Active Substance: SULFAMETHOXAZOLE\TRIMETHOPRIM
  11. ACYCLOVIR [Concomitant]
     Active Substance: ACYCLOVIR

REACTIONS (1)
  - Vomiting [Recovered/Resolved]

NARRATIVE: CASE EVENT DATE: 20211227
